FAERS Safety Report 25401351 (Version 3)
Quarter: 2025Q3

REPORT INFORMATION
  Report Type: Spontaneous
  Country: US (occurrence: US)
  Receive Date: 20250605
  Receipt Date: 20250720
  Transmission Date: 20251021
  Serious: No
  Sender: IPSEN BIOPHARMACEUTICALS, INC.
  Company Number: US-IPSEN Group, Research and Development-2025-12887

PATIENT
  Sex: Female
  Weight: 45 kg

DRUGS (6)
  1. BYLVAY [Suspect]
     Active Substance: ODEVIXIBAT
     Indication: Progressive familial intrahepatic cholestasis
     Dates: start: 20250411
  2. CHOLESTYRAMINE [Concomitant]
     Active Substance: CHOLESTYRAMINE
  3. URSODIOL [Concomitant]
     Active Substance: URSODIOL
  4. DICYCLOMINE HYDROCHLORIDE [Concomitant]
     Active Substance: DICYCLOMINE HYDROCHLORIDE
  5. NAPROXEN [Concomitant]
     Active Substance: NAPROXEN
  6. SPIRONOLACTONE [Concomitant]
     Active Substance: SPIRONOLACTONE

REACTIONS (5)
  - Headache [Unknown]
  - Sinusitis [Unknown]
  - Product dose omission issue [Unknown]
  - Off label use [Unknown]
  - Off label use [Unknown]
